FAERS Safety Report 19496032 (Version 1)
Quarter: 2021Q3

REPORT INFORMATION
  Report Type: Spontaneous
  Country: US (occurrence: US)
  Receive Date: 20210706
  Receipt Date: 20210706
  Transmission Date: 20211014
  Serious: Yes (Other)
  Sender: FDA-Public Use
  Company Number: US-CIPLA LTD.-2021US04713

PATIENT

DRUGS (1)
  1. RANOLAZINE. [Suspect]
     Active Substance: RANOLAZINE
     Indication: PRODUCT USED FOR UNKNOWN INDICATION
     Dosage: UNK
     Route: 065

REACTIONS (5)
  - Musculoskeletal toxicity [Recovering/Resolving]
  - Myopathy [Recovering/Resolving]
  - Lipid metabolism disorder [Recovering/Resolving]
  - Respiratory failure [Recovering/Resolving]
  - Dropped head syndrome [Recovering/Resolving]
